FAERS Safety Report 9663809 (Version 1)
Quarter: 2013Q4

REPORT INFORMATION
  Report Type: Spontaneous
  Country: SE (occurrence: SE)
  Receive Date: 20131101
  Receipt Date: 20131101
  Transmission Date: 20140711
  Serious: Yes (Life-Threatening)
  Sender: FDA-Public Use
  Company Number: SE-NOVOPROD-391147

PATIENT
  Age: 42 Year
  Sex: Male

DRUGS (3)
  1. VICTOZA [Suspect]
     Indication: DIABETES MELLITUS
     Route: 058
     Dates: start: 20111205, end: 20120629
  2. METFORMIN [Concomitant]
     Indication: DIABETES MELLITUS
  3. VIAGRA [Concomitant]

REACTIONS (1)
  - Cardiac failure [Not Recovered/Not Resolved]
